FAERS Safety Report 17625753 (Version 2)
Quarter: 2021Q1

REPORT INFORMATION
  Report Type: Spontaneous
  Country: US (occurrence: US)
  Receive Date: 20200404
  Receipt Date: 20210105
  Transmission Date: 20210419
  Serious: No
  Sender: FDA-Public Use
  Company Number: US-TEVA-2020-US-1217597

PATIENT
  Age: 66 Year
  Sex: Female

DRUGS (15)
  1. ASPIRIN. [Concomitant]
     Active Substance: ASPIRIN
  2. LEVOTHYROXIN [Concomitant]
     Active Substance: LEVOTHYROXINE
  3. ATORVASTSTIN [Concomitant]
  4. NALTREXONE [Concomitant]
     Active Substance: NALTREXONE
  5. DILTIAZEM. [Concomitant]
     Active Substance: DILTIAZEM
  6. FLUTICASONE. [Concomitant]
     Active Substance: FLUTICASONE
  7. FUROSEMIDE. [Concomitant]
     Active Substance: FUROSEMIDE
  8. PAROXETINE. [Concomitant]
     Active Substance: PAROXETINE
  9. ARIPIPRAZOLE. [Concomitant]
     Active Substance: ARIPIPRAZOLE
  10. DOXYCYC  HYC [Concomitant]
  11. WARFARIN [Concomitant]
     Active Substance: WARFARIN
     Route: 065
  12. KLOR?CON [Concomitant]
     Active Substance: POTASSIUM CHLORIDE
  13. AMOXIL [Concomitant]
     Active Substance: AMOXICILLIN
  14. METOPROLOL TARTRATE. [Concomitant]
     Active Substance: METOPROLOL TARTRATE
  15. COPAXONE [Suspect]
     Active Substance: GLATIRAMER ACETATE
     Indication: MULTIPLE SCLEROSIS
     Route: 058
     Dates: start: 20200220

REACTIONS (3)
  - Gait disturbance [Not Recovered/Not Resolved]
  - Dizziness [Not Recovered/Not Resolved]
  - Balance disorder [Not Recovered/Not Resolved]

NARRATIVE: CASE EVENT DATE: 20200227
